FAERS Safety Report 24769784 (Version 1)
Quarter: 2024Q4

REPORT INFORMATION
  Report Type: Spontaneous
  Country: US (occurrence: US)
  Receive Date: 20241224
  Receipt Date: 20241224
  Transmission Date: 20250115
  Serious: Yes (Other)
  Sender: RECORDATI
  Company Number: US-RECORDATI RARE DISEASE INC.-2024007658

PATIENT

DRUGS (14)
  1. ISTURISA [Suspect]
     Active Substance: OSILODROSTAT PHOSPHATE
     Indication: Cushing^s syndrome
     Dosage: 1 MG, BID
     Route: 048
     Dates: start: 20240510, end: 20240727
  2. ISTURISA [Suspect]
     Active Substance: OSILODROSTAT PHOSPHATE
     Dosage: 1 MG, DAILY
     Route: 048
     Dates: start: 20240829, end: 2024
  3. ISTURISA [Suspect]
     Active Substance: OSILODROSTAT PHOSPHATE
     Dosage: 1 MG, DAILY (RE-STARTED 4 DAYS AFTER SURGERY)
     Route: 048
     Dates: start: 2024
  4. ALBUTEROL SULFATE [Concomitant]
     Active Substance: ALBUTEROL SULFATE
     Indication: Product used for unknown indication
     Dosage: 108 (90 BASE), PRN (AEROSOL)
     Dates: start: 20210508
  5. ANORO ELLIPTA [Concomitant]
     Active Substance: UMECLIDINIUM BROMIDE\VILANTEROL TRIFENATATE
     Indication: Product used for unknown indication
     Dosage: 62.5-25, DAILY (AEROSOL)
     Dates: start: 20230508
  6. ACETAMINOPHEN\HYDROCODONE [Concomitant]
     Active Substance: ACETAMINOPHEN\HYDROCODONE
     Indication: Product used for unknown indication
     Dosage: 5-325 MG, QID (TABLET)
     Route: 048
     Dates: start: 20240208
  7. FAMOTIDINE [Concomitant]
     Active Substance: FAMOTIDINE
     Indication: Product used for unknown indication
     Dosage: 40 MG, DAILY (40 MG TABLET)
     Route: 048
     Dates: start: 20220508
  8. OMEPRAZOLE [Concomitant]
     Active Substance: OMEPRAZOLE
     Indication: Product used for unknown indication
     Dosage: 20 MG, DAILY (DELAYED RELEASE CAPSULE)
     Route: 048
     Dates: start: 20220508
  9. METOPROLOL [Concomitant]
     Active Substance: METOPROLOL
     Indication: Product used for unknown indication
     Dosage: 100 MG, TID (100 MG TABLET)
     Route: 048
     Dates: start: 20230508
  10. TRAZODONE [Concomitant]
     Active Substance: TRAZODONE HYDROCHLORIDE
     Indication: Product used for unknown indication
     Dosage: 100 MG, QD (HS) (50 MG TABLET)
     Route: 048
     Dates: start: 20230508
  11. TYLENOL EXTRA STRENGTH [Concomitant]
     Active Substance: ACETAMINOPHEN
     Indication: Product used for unknown indication
     Dosage: 500 MG, PRN (TABLET)
     Route: 048
     Dates: start: 20200508
  12. HYDROCHLOROTHIAZIDE [Concomitant]
     Active Substance: HYDROCHLOROTHIAZIDE
     Indication: Product used for unknown indication
     Dosage: 12.5 MG, DAILY (12 MG TABLET)
     Route: 048
     Dates: start: 20220508
  13. METFORMIN HYDROCHLORIDE [Concomitant]
     Active Substance: METFORMIN HYDROCHLORIDE
     Indication: Product used for unknown indication
     Dosage: 500 MG, DAILY (EXDENDED RELEASE TABLET)
     Route: 048
     Dates: start: 20240827, end: 20241004
  14. ROSUVASTATIN CALCIUM [Concomitant]
     Active Substance: ROSUVASTATIN CALCIUM
     Indication: Product used for unknown indication
     Dosage: 5 MG, DAILY (5 MG TABLET)
     Route: 048
     Dates: start: 20240916

REACTIONS (3)
  - Lymphoma [Unknown]
  - Respiratory symptom [Recovered/Resolved]
  - Off label use [Recovered/Resolved]

NARRATIVE: CASE EVENT DATE: 20240101
